FAERS Safety Report 18352577 (Version 1)
Quarter: 2020Q4

REPORT INFORMATION
  Report Type: Spontaneous
  Country: CN (occurrence: CN)
  Receive Date: 20201007
  Receipt Date: 20201007
  Transmission Date: 20210114
  Serious: Yes (Death, Other)
  Sender: FDA-Public Use
  Company Number: CN-LUPIN PHARMACEUTICALS INC.-2020-06874

PATIENT
  Age: 57 Year
  Sex: Male
  Weight: 86 kg

DRUGS (7)
  1. METHYLPREDNISOLONE. [Suspect]
     Active Substance: METHYLPREDNISOLONE
     Indication: COVID-19
     Dosage: UNK (ANOTHER COURSE DUE TO FALL IN PAO2)
     Route: 065
     Dates: start: 20200212
  2. GAMMAGLOBULIN [Concomitant]
     Active Substance: HUMAN IMMUNOGLOBULIN G
     Indication: ACUTE RESPIRATORY DISTRESS SYNDROME
     Dosage: 10 GRAM, QD
     Route: 065
     Dates: start: 20200205, end: 20200210
  3. MOXIFLOXACIN. [Suspect]
     Active Substance: MOXIFLOXACIN
     Indication: COVID-19
     Dosage: UNK
     Route: 042
     Dates: start: 202002
  4. GAMMAGLOBULIN [Concomitant]
     Active Substance: HUMAN IMMUNOGLOBULIN G
     Indication: COVID-19
  5. LEVOFLOXACIN. [Suspect]
     Active Substance: LEVOFLOXACIN
     Indication: COVID-19
     Dosage: UNK
     Route: 048
     Dates: start: 202002
  6. METHYLPREDNISOLONE. [Suspect]
     Active Substance: METHYLPREDNISOLONE
     Indication: ACUTE RESPIRATORY DISTRESS SYNDROME
     Dosage: 40-160 MG, QD
     Route: 042
     Dates: start: 20200204, end: 20200209
  7. RIBAVIRIN. [Suspect]
     Active Substance: RIBAVIRIN
     Indication: COVID-19
     Dosage: UNK
     Route: 065
     Dates: start: 202002

REACTIONS (1)
  - Off label use [Unknown]

NARRATIVE: CASE EVENT DATE: 202002
